FAERS Safety Report 6231269-9 (Version None)
Quarter: 2009Q2

REPORT INFORMATION
  Report Type: 
  Country: None (occurrence: None)
  Receive Date: 20090611
  Receipt Date: 20090603
  Transmission Date: 20091009
  Serious: Yes (Life-Threatening, Hospitalization)
  Sender: FDA-Public Use
  Company Number: FR-WYE-G03784009

PATIENT
  Age: 49 Year
  Sex: Female

DRUGS (1)
  1. ADVIL [Suspect]
     Indication: TENDONITIS
     Dosage: 400 MG 3X PER 1 DAY ORAL
     Route: 048
     Dates: start: 20080719, end: 20080729

REACTIONS (32)
  - ALPHA GLOBULIN INCREASED [None]
  - ANTINEUTROPHIL CYTOPLASMIC ANTIBODY POSITIVE [None]
  - ANTINUCLEAR ANTIBODY POSITIVE [None]
  - BLOOD LACTATE DEHYDROGENASE INCREASED [None]
  - BLOOD SODIUM DECREASED [None]
  - BUNDLE BRANCH BLOCK RIGHT [None]
  - CARDIAC VENTRICULOGRAM RIGHT ABNORMAL [None]
  - CHOLESTASIS [None]
  - CYTOLYTIC HEPATITIS [None]
  - DRUG RASH WITH EOSINOPHILIA AND SYSTEMIC SYMPTOMS [None]
  - ELECTROCARDIOGRAM T WAVE INVERSION [None]
  - ENANTHEMA [None]
  - EPSTEIN-BARR VIRUS INFECTION [None]
  - GENERAL PHYSICAL HEALTH DETERIORATION [None]
  - HAEMATURIA [None]
  - HAEMODIALYSIS [None]
  - HYPERGAMMAGLOBULINAEMIA [None]
  - HYPOALBUMINAEMIA [None]
  - INFLAMMATION [None]
  - IRIDOCYCLITIS [None]
  - KIDNEY FIBROSIS [None]
  - LEUKOPENIA [None]
  - LIPASE INCREASED [None]
  - MULTI-ORGAN FAILURE [None]
  - MYOCARDITIS [None]
  - NEUTROPENIA [None]
  - NORMOCHROMIC NORMOCYTIC ANAEMIA [None]
  - PROTEINURIA [None]
  - RENAL FAILURE ACUTE [None]
  - RETINAL PIGMENT EPITHELIOPATHY [None]
  - TOXIC SKIN ERUPTION [None]
  - TUBULOINTERSTITIAL NEPHRITIS [None]
